FAERS Safety Report 24028474 (Version 3)
Quarter: 2025Q1

REPORT INFORMATION
  Report Type: Spontaneous
  Country: GB (occurrence: GB)
  Receive Date: 20240628
  Receipt Date: 20250310
  Transmission Date: 20250409
  Serious: Yes (Death, Other)
  Sender: TEVA
  Company Number: GB-Accord-429989

PATIENT
  Age: 93 Year
  Sex: Male

DRUGS (3)
  1. LAMOTRIGINE [Suspect]
     Active Substance: LAMOTRIGINE
     Indication: Hypertension
     Route: 065
     Dates: start: 20231003
  2. APIXABAN [Concomitant]
     Active Substance: APIXABAN
     Indication: Product used for unknown indication
  3. LOSARTAN POTASSIUM [Suspect]
     Active Substance: LOSARTAN POTASSIUM
     Indication: Hypertension
     Route: 065

REACTIONS (10)
  - Death [Fatal]
  - Product dispensing error [Unknown]
  - Dyspnoea [Unknown]
  - Gastrointestinal haemorrhage [Unknown]
  - Peripheral swelling [Unknown]
  - Hypotension [Unknown]
  - Loss of consciousness [Unknown]
  - Swelling face [Unknown]
  - Swelling [Unknown]
  - Livedo reticularis [Unknown]

NARRATIVE: CASE EVENT DATE: 20231003
